FAERS Safety Report 16383388 (Version 1)
Quarter: 2019Q2

REPORT INFORMATION
  Report Type: Spontaneous
  Country: ZA (occurrence: ZA)
  Receive Date: 20190603
  Receipt Date: 20190603
  Transmission Date: 20190711
  Serious: Yes (Death)
  Sender: FDA-Public Use
  Company Number: ZA-ABBVIE-19S-143-2806009-00

PATIENT
  Weight: 3 kg

DRUGS (1)
  1. SURVANTA [Suspect]
     Active Substance: BERACTANT
     Indication: MECONIUM ASPIRATION SYNDROME
     Route: 065

REACTIONS (1)
  - Off label use [Fatal]
